FAERS Safety Report 6866903-3 (Version None)
Quarter: 2010Q3

REPORT INFORMATION
  Report Type: 
  Country: None (occurrence: None)
  Receive Date: 20100722
  Receipt Date: 20100712
  Transmission Date: 20110219
  Serious: Yes (Disabling, Other)
  Sender: FDA-Public Use
  Company Number: US-CELGENEUS-163-20785-10042303

PATIENT
  Sex: Female

DRUGS (11)
  1. THALOMID [Suspect]
     Indication: MULTIPLE MYELOMA
     Route: 048
     Dates: start: 20100215, end: 20100308
  2. THALOMID [Suspect]
     Route: 048
     Dates: start: 20100125
  3. VELCADE [Suspect]
     Indication: MULTIPLE MYELOMA
     Route: 065
     Dates: end: 20100104
  4. VELCADE [Suspect]
     Route: 065
     Dates: start: 20100114, end: 20100201
  5. VELCADE [Suspect]
     Route: 065
     Dates: start: 20100215, end: 20100308
  6. DEXAMETHASONE [Suspect]
     Indication: MULTIPLE MYELOMA
     Route: 065
     Dates: end: 20100104
  7. DEXAMETHASONE [Suspect]
     Route: 065
     Dates: start: 20100114, end: 20100201
  8. DEXAMETHASONE [Suspect]
     Route: 065
     Dates: start: 20100215, end: 20100308
  9. PROCRIT [Concomitant]
     Indication: PRODUCT USED FOR UNKNOWN INDICATION
     Route: 065
  10. VERAPAMIL [Concomitant]
     Indication: PRODUCT USED FOR UNKNOWN INDICATION
     Route: 065
     Dates: end: 20100101
  11. VERAPAMIL [Concomitant]
     Dosage: DECREASED BY HALF
     Route: 065
     Dates: start: 20100215

REACTIONS (6)
  - ASTHENIA [None]
  - DYSPNOEA [None]
  - NEUROPATHY PERIPHERAL [None]
  - PERFORMANCE STATUS DECREASED [None]
  - PLATELET COUNT DECREASED [None]
  - TREMOR [None]
